FAERS Safety Report 15984830 (Version 2)
Quarter: 2019Q1

REPORT INFORMATION
  Report Type: Spontaneous
  Country: US (occurrence: US)
  Receive Date: 20190220
  Receipt Date: 20190227
  Transmission Date: 20190418
  Serious: No
  Sender: FDA-Public Use
  Company Number: US-BAYER-2019-036252

PATIENT
  Age: 23 Year
  Sex: Female
  Weight: 81.63 kg

DRUGS (1)
  1. CLARITIN LIQUI-GELS [Suspect]
     Active Substance: LORATADINE
     Indication: URTICARIA
     Dosage: 1 DF

REACTIONS (2)
  - Urticaria [Unknown]
  - Drug effective for unapproved indication [Unknown]
